FAERS Safety Report 12573329 (Version 1)
Quarter: 2016Q3

REPORT INFORMATION
  Report Type: Spontaneous
  Country: SE (occurrence: SE)
  Receive Date: 20160720
  Receipt Date: 20160720
  Transmission Date: 20161109
  Serious: Yes (Hospitalization)
  Sender: FDA-Public Use
  Company Number: SE-TEVA-674336ISR

PATIENT
  Age: 22 Year
  Sex: Female

DRUGS (3)
  1. SERTRALINE [Suspect]
     Active Substance: SERTRALINE HYDROCHLORIDE
     Route: 065
  2. NAPROXEN. [Suspect]
     Active Substance: NAPROXEN
  3. PANODIL [Suspect]
     Active Substance: ACETAMINOPHEN

REACTIONS (2)
  - Suicidal ideation [Unknown]
  - Toxicity to various agents [Unknown]
